FAERS Safety Report 6899367-4 (Version None)
Quarter: 2010Q3

REPORT INFORMATION
  Report Type: 
  Country: None (occurrence: None)
  Receive Date: 20100803
  Receipt Date: 20090421
  Transmission Date: 20110219
  Serious: No
  Sender: FDA-Public Use
  Company Number: US-PFIZER INC-2009176110

PATIENT
  Sex: Male
  Weight: 118 kg

DRUGS (3)
  1. NEURONTIN [Suspect]
     Indication: NEURALGIA
     Dosage: 1400 MG QID + 800 MG HS
     Dates: start: 20000101
  2. PERCODAN-DEMI [Concomitant]
  3. DIAZEPAM [Concomitant]

REACTIONS (3)
  - ASTHENIA [None]
  - BURNING SENSATION [None]
  - INCORRECT DOSE ADMINISTERED [None]
